FAERS Safety Report 10154733 (Version 2)
Quarter: 2014Q2

REPORT INFORMATION
  Report Type: Report from Study
  Country: FR (occurrence: FR)
  Receive Date: 20140506
  Receipt Date: 20140506
  Transmission Date: 20141212
  Serious: Yes (Death, Life-Threatening, Hospitalization, Other)
  Sender: FDA-Public Use
  Company Number: FR-SA-CLOF-1001794

PATIENT
  Age: 16 Year
  Sex: Female
  Weight: 53 kg

DRUGS (6)
  1. CLOFARABINE [Suspect]
     Indication: ACUTE LYMPHOCYTIC LEUKAEMIA
     Dosage: 60 MG, QDX5
     Route: 042
     Dates: start: 20110914, end: 20110918
  2. CYCLOPHOSPHAMIDE [Suspect]
     Indication: ACUTE LYMPHOCYTIC LEUKAEMIA
     Dosage: 682 MG, QD
     Route: 042
     Dates: start: 20110914, end: 20110918
  3. ETOPOSIDE PHOSPHATE [Suspect]
     Indication: ACUTE LYMPHOCYTIC LEUKAEMIA
     Dosage: 155 MG, QD
     Route: 065
     Dates: start: 20110914, end: 20110918
  4. MORPHINE [Concomitant]
     Indication: PAIN
     Dosage: UNK
     Route: 065
     Dates: start: 20110916
  5. BACTRIM [Concomitant]
     Indication: PRODUCT USED FOR UNKNOWN INDICATION
     Dosage: 800 MG, QD
     Route: 042
     Dates: start: 20110914, end: 20111010
  6. AMIKACIN [Concomitant]
     Indication: PYREXIA
     Dosage: 1000 MG, QD
     Route: 042
     Dates: start: 20110916, end: 20110920

REACTIONS (3)
  - Candida infection [Fatal]
  - Gastrointestinal haemorrhage [Recovered/Resolved]
  - Septic shock [Not Recovered/Not Resolved]
